FAERS Safety Report 15082825 (Version 5)
Quarter: 2018Q4

REPORT INFORMATION
  Report Type: Spontaneous
  Country: PT (occurrence: DE)
  Receive Date: 20180628
  Receipt Date: 20180913
  Transmission Date: 20190204
  Serious: Yes (Other)
  Sender: FDA-Public Use
  Company Number: PT-SUNOVION-2018SUN002601

PATIENT

DRUGS (5)
  1. ZEBINIX [Suspect]
     Active Substance: ESLICARBAZEPINE ACETATE
     Dosage: 2000 MG, QD
     Route: 048
     Dates: start: 20180516, end: 20180629
  2. VIMPAT [Concomitant]
     Active Substance: LACOSAMIDE
     Indication: TEMPORAL LOBE EPILEPSY
     Dosage: 200 MG, DAILY
     Route: 065
     Dates: end: 20180629
  3. ZEBINIX [Suspect]
     Active Substance: ESLICARBAZEPINE ACETATE
     Indication: TEMPORAL LOBE EPILEPSY
     Dosage: 1600 MG, QD
     Route: 048
     Dates: start: 20180503, end: 20180515
  4. DIMAVAL (UNITHIOL) [Suspect]
     Active Substance: UNITHIOL
     Indication: PRODUCT USED FOR UNKNOWN INDICATION
     Dosage: 1 DF, SINGLE DOSE
     Route: 065
  5. TRILEPTAL [Concomitant]
     Active Substance: OXCARBAZEPINE
     Indication: TEMPORAL LOBE EPILEPSY
     Dosage: 2100 MG, DAILY
     Route: 065
     Dates: end: 20180629

REACTIONS (5)
  - Labelled drug-drug interaction medication error [Unknown]
  - Status epilepticus [Recovered/Resolved]
  - Drug dose titration not performed [Unknown]
  - Seizure [Recovered/Resolved]
  - Overdose [Unknown]

NARRATIVE: CASE EVENT DATE: 20180503
